APPROVED DRUG PRODUCT: DOXORUBICIN HYDROCHLORIDE
Active Ingredient: DOXORUBICIN HYDROCHLORIDE
Strength: 2MG/ML
Dosage Form/Route: INJECTABLE;INJECTION
Application: A065515 | Product #001
Applicant: ALMAJECT INC
Approved: Nov 8, 2012 | RLD: No | RS: No | Type: DISCN